FAERS Safety Report 10508565 (Version 3)
Quarter: 2014Q4

REPORT INFORMATION
  Report Type: Report from Study
  Country: US (occurrence: US)
  Receive Date: 20141009
  Receipt Date: 20141107
  Transmission Date: 20150528
  Serious: Yes (Hospitalization, Other)
  Sender: FDA-Public Use
  Company Number: US-MERCK-1410USA003087

PATIENT
  Age: 18 Year
  Sex: Male

DRUGS (4)
  1. NAPROXEN. [Concomitant]
     Active Substance: NAPROXEN
     Indication: HEADACHE
     Dosage: 440 MG DIALY DOSE, PRN
     Route: 048
  2. IBUPROFEN. [Concomitant]
     Active Substance: IBUPROFEN
     Indication: HEADACHE
     Dosage: 400 MG DIALY DOSE, PRN
     Route: 048
  3. PEMBROLIZUMAB. [Suspect]
     Active Substance: PEMBROLIZUMAB
     Indication: METASTATIC MALIGNANT MELANOMA
     Dosage: 2 MG/KG, Q3W (TOTAL DAILY DOSE: 110 MG)
     Route: 042
     Dates: start: 20140822, end: 20140822
  4. PEMBROLIZUMAB. [Suspect]
     Active Substance: PEMBROLIZUMAB
     Dosage: 2 MG/KG, Q3W (TOTAL DAILY DOSE: 109 MG)
     Route: 042
     Dates: start: 20140912, end: 20140912

REACTIONS (6)
  - Tri-iodothyronine free decreased [Recovering/Resolving]
  - Blood corticotrophin increased [Recovered/Resolved]
  - Hypopituitarism [Recovering/Resolving]
  - Headache [Not Recovered/Not Resolved]
  - Thyroxine free decreased [Recovering/Resolving]
  - Rash maculo-papular [Not Recovered/Not Resolved]

NARRATIVE: CASE EVENT DATE: 20140903
